FAERS Safety Report 5986679-1 (Version None)
Quarter: 2008Q4

REPORT INFORMATION
  Report Type: 
  Country: None (occurrence: None)
  Receive Date: 20081209
  Receipt Date: 20081201
  Transmission Date: 20090506
  Serious: Yes (Death)
  Sender: FDA-Public Use
  Company Number: US-GILEAD-2008-0019283

PATIENT
  Sex: Female
  Weight: 74.002 kg

DRUGS (10)
  1. LETAIRIS [Suspect]
     Indication: PULMONARY ARTERIAL HYPERTENSION
     Route: 048
     Dates: start: 20071018
  2. REVATIO [Concomitant]
  3. LASIX [Concomitant]
  4. PRINIVIL [Concomitant]
  5. PREDNISONE TAB [Concomitant]
  6. ALBUTEROL [Concomitant]
  7. PLAVIX [Concomitant]
  8. FOSAMAX [Concomitant]
  9. ZANTAC [Concomitant]
  10. ASPIRIN [Concomitant]

REACTIONS (1)
  - INTERSTITIAL LUNG DISEASE [None]
